FAERS Safety Report 8567191-2 (Version None)
Quarter: 2012Q3

REPORT INFORMATION
  Report Type: 
  Country: None (occurrence: None)
  Receive Date: 20120803
  Receipt Date: 20110804
  Transmission Date: 20120928
  Serious: No
  Sender: FDA-Public Use
  Company Number: US-ABBOTT-11P-163-0844300-00

PATIENT
  Sex: Male

DRUGS (1)
  1. NIASPAN [Suspect]
     Indication: HIGH DENSITY LIPOPROTEIN ABNORMAL

REACTIONS (6)
  - DISCOMFORT [None]
  - HYPOTENSION [None]
  - DIZZINESS [None]
  - VISUAL IMPAIRMENT [None]
  - DIARRHOEA [None]
  - LOSS OF CONSCIOUSNESS [None]
